FAERS Safety Report 11059191 (Version 1)
Quarter: 2015Q2

REPORT INFORMATION
  Report Type: Spontaneous
  Country: US (occurrence: None)
  Receive Date: 20150420
  Receipt Date: 20150420
  Transmission Date: 20150821
  Serious: No
  Sender: FDA-Public Use
  Company Number: AEGR001219

PATIENT
  Age: 34 Year
  Sex: Female
  Weight: 59.4 kg

DRUGS (12)
  1. NIACIN. [Concomitant]
     Active Substance: NIACIN
  2. DESVENLAFAXINE. [Concomitant]
     Active Substance: DESVENLAFAXINE
  3. CLOPIDOGREL [Concomitant]
     Active Substance: CLOPIDOGREL BISULFATE
  4. NUVARING (ETHINYLESTRADIOL, ETONOGESTREL) [Concomitant]
  5. JUXTAPID [Suspect]
     Active Substance: LOMITAPIDE MESYLATE
     Indication: TYPE IIA HYPERLIPIDAEMIA
     Route: 048
     Dates: start: 20140624
  6. RAMIPRIL. [Concomitant]
     Active Substance: RAMIPRIL
  7. CILOSTAZOL. [Concomitant]
     Active Substance: CILOSTAZOL
  8. ROSUVASTATIN [Concomitant]
     Active Substance: ROSUVASTATIN
  9. ZOLPIDEM [Concomitant]
     Active Substance: ZOLPIDEM\ZOLPIDEM TARTRATE
  10. EZETIMIBE. [Concomitant]
     Active Substance: EZETIMIBE
  11. COLESEVELAM [Concomitant]
     Active Substance: COLESEVELAM
  12. ASPIRIN (ACETYLSALICYLIC ACID) [Concomitant]
     Active Substance: ASPIRIN

REACTIONS (1)
  - Vision blurred [None]

NARRATIVE: CASE EVENT DATE: 20150201
